FAERS Safety Report 6518076-4 (Version None)
Quarter: 2009Q4

REPORT INFORMATION
  Report Type: 
  Country: None (occurrence: None)
  Receive Date: 20091224
  Receipt Date: 20091216
  Transmission Date: 20100525
  Serious: Yes (Other)
  Sender: FDA-Public Use
  Company Number: US-GENENTECH-292837

PATIENT
  Sex: Female

DRUGS (7)
  1. XOLAIR [Suspect]
     Indication: ASTHMA
     Dosage: 300 MG, Q4W
     Route: 058
     Dates: start: 20090901
  2. FLU SHOT [Concomitant]
     Indication: PROPHYLAXIS
  3. VENTOLIN [Concomitant]
     Indication: DRUG USE FOR UNKNOWN INDICATION
     Dosage: UNK
     Route: 055
  4. CLARITIN [Concomitant]
     Indication: HYPERSENSITIVITY
     Dosage: UNK
     Route: 048
  5. SYMBICORT [Concomitant]
     Indication: ASTHMA
     Dosage: UNK
     Route: 055
     Dates: start: 20090513
  6. SINGULAIR [Concomitant]
     Indication: HYPERSENSITIVITY
     Dosage: 10 MG, QD
     Route: 048
     Dates: start: 20090513
  7. SINGULAIR [Concomitant]
     Indication: ASTHMA

REACTIONS (1)
  - SENSATION OF FOREIGN BODY [None]
